FAERS Safety Report 6371851-1 (Version None)
Quarter: 2009Q3

REPORT INFORMATION
  Report Type: 
  Country: None (occurrence: None)
  Receive Date: 20090923
  Receipt Date: 20090914
  Transmission Date: 20100115
  Serious: Yes (Other)
  Sender: FDA-Public Use
  Company Number: PHHY2009DE40095

PATIENT
  Age: 57 Year
  Sex: Male
  Weight: 93 kg

DRUGS (3)
  1. ZOMETA [Suspect]
     Indication: PROSTATE CANCER METASTATIC
     Dosage: 4 MG DAILY
     Route: 042
  2. CARBOPLATIN [Concomitant]
     Dosage: UNK
  3. DOCETAXEL [Concomitant]
     Dosage: 35 MG/M2, EVERY WEEK

REACTIONS (1)
  - OSTEONECROSIS [None]
